FAERS Safety Report 4715114-6 (Version None)
Quarter: 2005Q3

REPORT INFORMATION
  Report Type: 
  Country: None (occurrence: None)
  Receive Date: 20050715
  Receipt Date: 20050407
  Transmission Date: 20060218
  Serious: Yes (Hospitalization)
  Sender: FDA-Public Use
  Company Number: US-MERCK-0504USA00984

PATIENT
  Age: 43 Year
  Sex: Female
  Weight: 79 kg

DRUGS (11)
  1. VIOXX [Suspect]
     Indication: OSTEOARTHRITIS
     Route: 048
     Dates: start: 20020201, end: 20030101
  2. VIOXX [Suspect]
     Route: 065
     Dates: end: 20040901
  3. VIOXX [Suspect]
     Indication: FIBROMYALGIA
     Route: 048
     Dates: start: 20020201, end: 20030101
  4. VIOXX [Suspect]
     Route: 065
     Dates: end: 20040901
  5. PROZAC [Concomitant]
     Indication: DEPRESSION
     Route: 048
     Dates: start: 20010101
  6. ATIVAN [Concomitant]
     Indication: DEPRESSION
     Route: 065
     Dates: start: 19870101
  7. ADVIL [Concomitant]
     Indication: ARTHRITIS
     Route: 065
     Dates: start: 19930101, end: 20030101
  8. ADVIL [Concomitant]
     Indication: HEADACHE
     Route: 065
     Dates: start: 19930101, end: 20030101
  9. ZESTRIL [Concomitant]
     Indication: HYPERTENSION
     Route: 065
     Dates: start: 20020101, end: 20040601
  10. SYNTHROID [Concomitant]
     Indication: HYPOTHYROIDISM
     Route: 048
  11. LIPITOR [Suspect]
     Indication: HYPERCHOLESTEROLAEMIA
     Route: 065
     Dates: start: 20030401, end: 20030101

REACTIONS (14)
  - ANGINA PECTORIS [None]
  - CARDIOMYOPATHY [None]
  - CHRONIC OBSTRUCTIVE PULMONARY DISEASE [None]
  - DEPRESSION [None]
  - HEPATIC STEATOSIS [None]
  - HYPERCHOLESTEROLAEMIA [None]
  - HYPOMAGNESAEMIA [None]
  - HYPOTHYROIDISM [None]
  - NON-CARDIAC CHEST PAIN [None]
  - POST-TRAUMATIC STRESS DISORDER [None]
  - TACHYCARDIA [None]
  - TRANSIENT ISCHAEMIC ATTACK [None]
  - VENTRICULAR HYPERTROPHY [None]
  - WEIGHT INCREASED [None]
